FAERS Safety Report 24642470 (Version 1)
Quarter: 2024Q4

REPORT INFORMATION
  Report Type: Spontaneous
  Country: US (occurrence: US)
  Receive Date: 20241120
  Receipt Date: 20241120
  Transmission Date: 20250115
  Serious: No
  Sender: ABBVIE
  Company Number: US-ABBVIE-6009596

PATIENT

DRUGS (3)
  1. QULIPTA [Suspect]
     Active Substance: ATOGEPANT
     Indication: Product used for unknown indication
     Route: 065
     Dates: end: 20241110
  2. MANNITOL [Suspect]
     Active Substance: MANNITOL
     Indication: Product used for unknown indication
     Route: 065
  3. SORBITOL [Suspect]
     Active Substance: SORBITOL
     Indication: Product used for unknown indication
     Route: 065

REACTIONS (6)
  - Pain [Unknown]
  - Adverse drug reaction [Unknown]
  - Migraine [Unknown]
  - Fatigue [Unknown]
  - Arthralgia [Unknown]
  - Diarrhoea [Unknown]
